FAERS Safety Report 6164716-1 (Version None)
Quarter: 2009Q2

REPORT INFORMATION
  Report Type: 
  Country: None (occurrence: None)
  Receive Date: 20090423
  Receipt Date: 20090410
  Transmission Date: 20091009
  Serious: No
  Sender: FDA-Public Use
  Company Number: US-SOLVAY-00209002051

PATIENT
  Age: 340 Month
  Sex: Female
  Weight: 90.9 kg

DRUGS (1)
  1. ANDROGEL [Suspect]
     Indication: ACCIDENTAL EXPOSURE
     Dosage: DAILY DOSE: 2.5 GRAM(S), VIA PUMP
     Route: 062
     Dates: start: 20090101

REACTIONS (1)
  - MENSTRUATION DELAYED [None]
